FAERS Safety Report 26097687 (Version 1)
Quarter: 2025Q4

REPORT INFORMATION
  Report Type: Spontaneous
  Country: JP (occurrence: JP)
  Receive Date: 20251127
  Receipt Date: 20251127
  Transmission Date: 20260117
  Serious: Yes (Hospitalization, Other)
  Sender: ALEXION PHARMACEUTICALS
  Company Number: JP-ASTRAZENECA-202511JPN011521JP

PATIENT
  Age: 78 Year
  Sex: Male

DRUGS (2)
  1. IMFINZI [Suspect]
     Active Substance: DURVALUMAB
     Indication: Hepatocellular carcinoma
     Dosage: UNK
     Route: 065
  2. IMJUDO [Suspect]
     Active Substance: TREMELIMUMAB\TREMELIMUMAB-ACTL
     Indication: Hepatocellular carcinoma
     Dosage: UNK
     Route: 065

REACTIONS (11)
  - Liver abscess [Unknown]
  - Cytokine release syndrome [Unknown]
  - Haemophagocytic lymphohistiocytosis [Unknown]
  - Adrenocortical insufficiency acute [Unknown]
  - Cardiac tamponade [Unknown]
  - Arrhythmia [Unknown]
  - Blood thyroid stimulating hormone decreased [Unknown]
  - Liver disorder [Unknown]
  - Pyrexia [Unknown]
  - AST/ALT ratio increased [Unknown]
  - Diarrhoea [Not Recovered/Not Resolved]
